FAERS Safety Report 11749728 (Version 1)
Quarter: 2015Q4

REPORT INFORMATION
  Report Type: Spontaneous
  Country: US (occurrence: None)
  Receive Date: 20151117
  Receipt Date: 20151117
  Transmission Date: 20160304
  Serious: No
  Sender: FDA-Public Use
  Company Number: None

PATIENT
  Age: 63 Year
  Sex: Female
  Weight: 59.88 kg

DRUGS (3)
  1. CLARITHROMYCIN. [Suspect]
     Active Substance: CLARITHROMYCIN
     Indication: PULMONARY CONGESTION
     Dosage: 1 TAB  2 TIMES A DAY  TWICE DAILY  TAKEN BY MOUTH
     Route: 048
     Dates: start: 20151113, end: 20151114
  2. CITALOPRAM [Concomitant]
     Active Substance: CITALOPRAM HYDROBROMIDE
  3. MULTI VITAMIN [Concomitant]
     Active Substance: VITAMINS

REACTIONS (11)
  - Influenza [None]
  - Abdominal pain upper [None]
  - Pain [None]
  - Blood pressure increased [None]
  - Dysgeusia [None]
  - Tremor [None]
  - Vomiting [None]
  - Heart rate increased [None]
  - Nasopharyngitis [None]
  - Headache [None]
  - Nausea [None]

NARRATIVE: CASE EVENT DATE: 20151113
